FAERS Safety Report 10187766 (Version 1)
Quarter: 2014Q2

REPORT INFORMATION
  Report Type: Spontaneous
  Country: US (occurrence: US)
  Receive Date: 20140522
  Receipt Date: 20140522
  Transmission Date: 20141212
  Serious: No
  Sender: FDA-Public Use
  Company Number: US-SANOFI-AVENTIS-2013SA087669

PATIENT
  Age: 74 Year
  Sex: Male
  Weight: 73.02 kg

DRUGS (3)
  1. SOLOSTAR [Suspect]
     Indication: DIABETES MELLITUS
  2. LANTUS SOLOSTAR [Suspect]
     Indication: DIABETES MELLITUS
     Dosage: DOSE: 19-25 UNITS
     Route: 051
     Dates: start: 20130515
  3. PREDNISONE [Concomitant]

REACTIONS (2)
  - Asthenia [Unknown]
  - Injection site haemorrhage [Unknown]
